FAERS Safety Report 6640841-3 (Version None)
Quarter: 2010Q1

REPORT INFORMATION
  Report Type: 
  Country: None (occurrence: None)
  Receive Date: 20100318
  Receipt Date: 20100309
  Transmission Date: 20100710
  Serious: Yes (Other)
  Sender: FDA-Public Use
  Company Number: US-PFIZER INC-2010030913

PATIENT
  Sex: Female
  Weight: 58.513 kg

DRUGS (8)
  1. LYRICA [Suspect]
     Indication: FIBROMYALGIA
     Dosage: 75 MG, 2X/DAY
     Dates: start: 20060101
  2. CELEXA [Concomitant]
     Indication: FIBROMYALGIA
     Dosage: 20 MG, UNK
  3. ESTRADIOL [Concomitant]
     Indication: HOT FLUSH
     Dosage: UNK
  4. ONE-A-DAY [Concomitant]
     Dosage: UNK
  5. CALCIUM [Concomitant]
     Dosage: UNK
  6. LORAZEPAM [Concomitant]
     Dosage: 1 MG, 1X/DAY
  7. TYLENOL-500 [Concomitant]
     Dosage: FREQUENCY: AS NEEDED,
  8. ALEVE (CAPLET) [Concomitant]
     Dosage: FREQUENCY: AS NEEDED,

REACTIONS (8)
  - CONFUSIONAL STATE [None]
  - DISTURBANCE IN ATTENTION [None]
  - EPISTAXIS [None]
  - HAEMOPTYSIS [None]
  - HYPERSENSITIVITY [None]
  - OROPHARYNGEAL PAIN [None]
  - PHARYNGEAL OEDEMA [None]
  - WEIGHT INCREASED [None]
